FAERS Safety Report 23760633 (Version 2)
Quarter: 2024Q3

REPORT INFORMATION
  Report Type: Spontaneous
  Country: FR (occurrence: FR)
  Receive Date: 20240419
  Receipt Date: 20240712
  Transmission Date: 20241016
  Serious: Yes (Hospitalization, Other)
  Sender: RANBAXY
  Company Number: FR-AFSSAPS-AVMP2024000030

PATIENT
  Age: 30 Year
  Sex: Female

DRUGS (5)
  1. MIDAZOLAM [Suspect]
     Active Substance: MIDAZOLAM
     Indication: Product used for unknown indication
     Dosage: SELF-INJECTION INTO THE CATHETER
     Route: 065
     Dates: start: 20231107, end: 202311
  2. MORPHINE [Suspect]
     Active Substance: MORPHINE
     Indication: Product used for unknown indication
     Dosage: BASAL RATE 2.5MG/H WITH
     Route: 040
     Dates: start: 2022, end: 20231130
  3. MORPHINE [Suspect]
     Active Substance: MORPHINE
     Dosage: UP TO 30 BOLI OF 1.5MG/DAY
     Route: 065
     Dates: start: 2022, end: 20231130
  4. ABSTRAL [Suspect]
     Active Substance: FENTANYL CITRATE
     Indication: Product used for unknown indication
     Dosage: 8 TO 10 TABLETS PER DAY
     Route: 065
     Dates: start: 2019, end: 202301
  5. NITROUS OXIDE\OXYGEN [Suspect]
     Active Substance: NITROUS OXIDE\OXYGEN
     Indication: Product used for unknown indication
     Dosage: 1 BOTTLE PER DAY
     Route: 055
     Dates: start: 202310, end: 202311

REACTIONS (1)
  - Drug use disorder [Recovering/Resolving]
